FAERS Safety Report 8226666-6 (Version None)
Quarter: 2012Q1

REPORT INFORMATION
  Report Type: 
  Country: None (occurrence: None)
  Receive Date: 20120322
  Receipt Date: 20120319
  Transmission Date: 20120608
  Serious: Yes (Other)
  Sender: FDA-Public Use
  Company Number: US-AMGEN-USASP2012017526

PATIENT
  Sex: Female

DRUGS (1)
  1. PROLIA [Suspect]
     Indication: OSTEOPOROSIS POSTMENOPAUSAL
     Dosage: UNK UNK, Q6MO
     Dates: start: 20120101

REACTIONS (8)
  - PAIN [None]
  - DISTURBANCE IN ATTENTION [None]
  - HEART RATE IRREGULAR [None]
  - NECK PAIN [None]
  - FATIGUE [None]
  - PAIN IN EXTREMITY [None]
  - BACK PAIN [None]
  - DECREASED APPETITE [None]
